FAERS Safety Report 9531606 (Version 2)
Quarter: 2013Q3

REPORT INFORMATION
  Report Type: Spontaneous
  Country: FR (occurrence: FR)
  Receive Date: 20130918
  Receipt Date: 20130918
  Transmission Date: 20140515
  Serious: Yes (Death, Hospitalization)
  Sender: FDA-Public Use
  Company Number: FR-PFIZER INC-2013211292

PATIENT
  Age: 63 Year
  Sex: Male

DRUGS (8)
  1. ZYVOXID [Suspect]
     Dosage: UNK
     Route: 042
     Dates: start: 20130531, end: 20130624
  2. CRESTOR [Concomitant]
  3. COAPROVEL [Concomitant]
  4. CANCIDAS [Concomitant]
  5. ZOVIRAX [Concomitant]
  6. FORTUM [Concomitant]
  7. BELUSTINE [Concomitant]
  8. CYTARABINE [Concomitant]

REACTIONS (2)
  - Bone marrow failure [Fatal]
  - Condition aggravated [Fatal]
